FAERS Safety Report 5886421-9 (Version None)
Quarter: 2008Q3

REPORT INFORMATION
  Report Type: 
  Country: None (occurrence: None)
  Receive Date: 20080917
  Receipt Date: 20080910
  Transmission Date: 20090109
  Serious: Yes (Other)
  Sender: FDA-Public Use
  Company Number: IR-JNJFOC-20080902598

PATIENT

DRUGS (1)
  1. DEXTROMETHORPHAN HYDROBROMIDE [Suspect]
     Indication: INTENTIONAL DRUG MISUSE

REACTIONS (3)
  - ADVERSE DRUG REACTION [None]
  - DRUG ABUSE [None]
  - URTICARIA [None]
